FAERS Safety Report 6668466-4 (Version None)
Quarter: 2010Q2

REPORT INFORMATION
  Report Type: 
  Country: None (occurrence: None)
  Receive Date: 20100406
  Receipt Date: 20100330
  Transmission Date: 20101027
  Serious: Yes (Life-Threatening, Hospitalization, Other)
  Sender: FDA-Public Use
  Company Number: PHHY2008CA14628

PATIENT
  Sex: Male

DRUGS (17)
  1. CLOZARIL [Suspect]
     Indication: SCHIZOPHRENIA, PARANOID TYPE
     Dosage: 25 MG, AM
     Route: 048
     Dates: start: 20000101
  2. CLOZARIL [Suspect]
     Dosage: 287.5 MG, QHS
     Dates: start: 20030319
  3. CLOZARIL [Suspect]
     Dosage: 400 MG
     Route: 048
     Dates: start: 20030101
  4. LIPITOR [Suspect]
     Dosage: 10 MG, HS
     Route: 048
  5. ZYPREXA ZYDIS [Suspect]
     Dosage: 10 MG, QHS
     Route: 048
  6. ASPIRIN [Concomitant]
     Dosage: 80 MG, AM
     Route: 048
  7. EPIVAL [Concomitant]
     Dosage: 1000 MG, QHS
     Route: 048
  8. LOXAPAC [Concomitant]
     Dosage: 35 MG, TID
     Route: 048
  9. AVANDIA [Concomitant]
     Dosage: 4 MG, AM
     Route: 048
  10. DIABETA [Concomitant]
     Dosage: UNK
     Route: 048
  11. GLUCOPHAGE [Concomitant]
     Dosage: 850 MG, TID
  12. METFORMIN [Concomitant]
     Dosage: 850 MG TID
     Route: 048
  13. HUMALOG [Concomitant]
  14. LANTUS [Concomitant]
  15. COLACE [Concomitant]
     Dosage: 200 MG, BID
  16. ATIVAN [Concomitant]
     Dosage: 1 MG, BID, PRN
  17. SENNOKOT [Concomitant]
     Dosage: 8.6 MG , 200 BID

REACTIONS (10)
  - BLOOD CHOLESTEROL INCREASED [None]
  - BLOOD CREATINE PHOSPHOKINASE INCREASED [None]
  - CONSTIPATION [None]
  - DEHYDRATION [None]
  - DIABETES MELLITUS INADEQUATE CONTROL [None]
  - DIABETIC HYPEROSMOLAR COMA [None]
  - HYPERGLYCAEMIA [None]
  - HYPOTHERMIA [None]
  - HYPOTHYROIDISM [None]
  - RHABDOMYOLYSIS [None]
